FAERS Safety Report 10708889 (Version 2)
Quarter: 2015Q1

REPORT INFORMATION
  Report Type: Spontaneous
  Country: CN (occurrence: CN)
  Receive Date: 20150114
  Receipt Date: 20150207
  Transmission Date: 20150721
  Serious: Yes (Hospitalization, Other)
  Sender: FDA-Public Use
  Company Number: CN-JNJFOC-20150101884

PATIENT
  Age: 2 Year
  Sex: Male
  Weight: 11.5 kg

DRUGS (2)
  1. MOTRIN [Suspect]
     Active Substance: IBUPROFEN
     Indication: PRODUCT USED FOR UNKNOWN INDICATION
     Route: 065
     Dates: start: 20140713
  2. TYLENOL INFANT SUSPENSION DROPS [Suspect]
     Active Substance: ACETAMINOPHEN
     Indication: PYREXIA
     Dosage: 12:15,22:35 RESPECTIVELY
     Route: 048
     Dates: start: 20140712, end: 20140714

REACTIONS (5)
  - Rash [Recovered/Resolved]
  - Drug hypersensitivity [Unknown]
  - Pruritus [Unknown]
  - Wrong technique in drug usage process [Unknown]
  - Rash erythematous [Unknown]

NARRATIVE: CASE EVENT DATE: 20140713
